FAERS Safety Report 5819387-8 (Version None)
Quarter: 2008Q3

REPORT INFORMATION
  Report Type: 
  Country: None (occurrence: None)
  Receive Date: 20080718
  Receipt Date: 20080702
  Transmission Date: 20090109
  Serious: Yes (Hospitalization)
  Sender: FDA-Public Use
  Company Number: 8031574

PATIENT
  Age: 62 Year
  Sex: Female
  Weight: 65 kg

DRUGS (3)
  1. KEPPRA [Suspect]
     Indication: STATUS EPILEPTICUS
     Dosage: IV
     Route: 042
  2. KEPPRA [Suspect]
     Indication: STATUS EPILEPTICUS
     Dosage: 1000 MG 3/D PO
     Route: 048
     Dates: start: 20071001, end: 20080201
  3. VPS [Suspect]
     Indication: STATUS EPILEPTICUS
     Dosage: 500 MG 3/D PO
     Route: 048
     Dates: start: 20071001, end: 20080201

REACTIONS (1)
  - THROMBOCYTOPENIA [None]
